FAERS Safety Report 11267632 (Version 1)
Quarter: 2015Q3

REPORT INFORMATION
  Report Type: Spontaneous
  Country: US (occurrence: US)
  Receive Date: 20150713
  Receipt Date: 20150713
  Transmission Date: 20151125
  Serious: Yes (Hospitalization, Other)
  Sender: FDA-Public Use
  Company Number: US-GLAXOSMITHKLINE-US2015GSK099451

PATIENT
  Age: 45 Year
  Sex: Female

DRUGS (4)
  1. FLOVENT HFA [Suspect]
     Active Substance: FLUTICASONE PROPIONATE
     Indication: ASTHMA
  2. FLOVENT HFA [Suspect]
     Active Substance: FLUTICASONE PROPIONATE
     Indication: CHRONIC OBSTRUCTIVE PULMONARY DISEASE
  3. ADVAIR HFA [Suspect]
     Active Substance: FLUTICASONE PROPIONATE\SALMETEROL XINAFOATE
     Indication: CHRONIC OBSTRUCTIVE PULMONARY DISEASE
  4. ADVAIR HFA [Suspect]
     Active Substance: FLUTICASONE PROPIONATE\SALMETEROL XINAFOATE
     Indication: ASTHMA
     Dosage: UNK
     Dates: start: 201304

REACTIONS (18)
  - Elbow operation [Unknown]
  - Chronic kidney disease [Unknown]
  - Tendonitis [Unknown]
  - Glucose tolerance impaired [Unknown]
  - Drug ineffective [Unknown]
  - Coronary artery disease [Unknown]
  - Carpal tunnel decompression [Unknown]
  - Sciatica [Unknown]
  - Glaucoma [Unknown]
  - Intervertebral disc protrusion [Unknown]
  - Chest pain [Unknown]
  - Blood potassium decreased [Unknown]
  - Amyotrophic lateral sclerosis [Unknown]
  - Foot fracture [Unknown]
  - Neurosurgery [Unknown]
  - Hypertension [Unknown]
  - Road traffic accident [Unknown]
  - Hiatus hernia [Unknown]

NARRATIVE: CASE EVENT DATE: 20101119
